FAERS Safety Report 23579565 (Version 2)
Quarter: 2024Q1

REPORT INFORMATION
  Report Type: Report from Study
  Country: US (occurrence: US)
  Receive Date: 20240229
  Receipt Date: 20240301
  Transmission Date: 20240409
  Serious: Yes (Other)
  Sender: FDA-Public Use
  Company Number: US-JNJFOC-20240275716

PATIENT
  Sex: Female

DRUGS (1)
  1. SIMPONI [Suspect]
     Active Substance: GOLIMUMAB
     Indication: Product used for unknown indication
     Route: 058

REACTIONS (6)
  - Haematochezia [Unknown]
  - Muscle spasms [Unknown]
  - Abdominal pain [Unknown]
  - Condition aggravated [Unknown]
  - Drug level decreased [Unknown]
  - Drug ineffective [Unknown]
